FAERS Safety Report 8799113 (Version 1)
Quarter: 2012Q4

REPORT INFORMATION
  Report Type: Spontaneous
  Country: US (occurrence: None)
  Receive Date: 20120914
  Receipt Date: 20120914
  Transmission Date: 20130627
  Serious: Yes (Hospitalization)
  Sender: FDA-Public Use
  Company Number: 1405789

PATIENT
  Age: 58 Year
  Sex: Female

DRUGS (1)
  1. PROPOFOL [Suspect]
     Indication: NASAL POLYPECTOMY
     Dosage: Intravenous (not otherwise specified)
     Route: 042

REACTIONS (3)
  - Chemical injury [None]
  - Infusion site extravasation [None]
  - Infusion site haemorrhage [None]
